FAERS Safety Report 13187084 (Version 1)
Quarter: 2017Q1

REPORT INFORMATION
  Report Type: Spontaneous
  Country: US (occurrence: US)
  Receive Date: 20170206
  Receipt Date: 20170206
  Transmission Date: 20170428
  Serious: No
  Sender: FDA-Public Use
  Company Number: PHEH2017US002728

PATIENT
  Sex: Female

DRUGS (1)
  1. ONDANSETRON HYDROCHLORIDE. [Suspect]
     Active Substance: ONDANSETRON HYDROCHLORIDE
     Indication: PRODUCT USED FOR UNKNOWN INDICATION
     Route: 065

REACTIONS (12)
  - Chest discomfort [Unknown]
  - Fatigue [Unknown]
  - Throat irritation [Unknown]
  - Cough [Unknown]
  - Swelling [Unknown]
  - Dyspnoea [Unknown]
  - Headache [Unknown]
  - Skin ulcer [Unknown]
  - Pruritus [Unknown]
  - Dysphonia [Unknown]
  - Gastrointestinal disorder [Unknown]
  - Dysphagia [Unknown]
